FAERS Safety Report 19099916 (Version 1)
Quarter: 2021Q2

REPORT INFORMATION
  Report Type: Spontaneous
  Country: US (occurrence: US)
  Receive Date: 20210407
  Receipt Date: 20210407
  Transmission Date: 20210717
  Serious: No
  Sender: FDA-Public Use
  Company Number: US-PTC THERAPEUTICS, INC.-US-2020PTC000255

PATIENT
  Sex: Male
  Weight: 52.61 kg

DRUGS (2)
  1. EMFLAZA [Suspect]
     Active Substance: DEFLAZACORT
     Indication: MUSCULAR DYSTROPHY
     Dosage: 22.5 MG, QOD
     Route: 048
     Dates: start: 20190701
  2. EMFLAZA [Suspect]
     Active Substance: DEFLAZACORT
     Dosage: 30 MG, QOD
     Route: 048
     Dates: start: 20190701

REACTIONS (4)
  - Dry skin [Unknown]
  - Rash [Unknown]
  - Erythema [Unknown]
  - Skin exfoliation [Unknown]
